FAERS Safety Report 4721115-4 (Version None)
Quarter: 2005Q3

REPORT INFORMATION
  Report Type: 
  Country: None (occurrence: None)
  Receive Date: 20050719
  Receipt Date: 20040903
  Transmission Date: 20060218
  Serious: Yes (Other)
  Sender: FDA-Public Use
  Company Number: 2004232299US

PATIENT
  Age: 60 Year
  Sex: Male

DRUGS (1)
  1. CELEBREX [Suspect]
     Indication: ARTHRITIS
     Dosage: QD, ORAL
     Route: 048
     Dates: start: 20020101, end: 20020101

REACTIONS (1)
  - GASTRIC HAEMORRHAGE [None]
